FAERS Safety Report 11199816 (Version 1)
Quarter: 2015Q2

REPORT INFORMATION
  Report Type: Spontaneous
  Country: US (occurrence: None)
  Receive Date: 20150616
  Receipt Date: 20150616
  Transmission Date: 20150821
  Serious: Yes (Other)
  Sender: FDA-Public Use
  Company Number: None

PATIENT
  Age: 55 Year
  Sex: Female
  Weight: 129.73 kg

DRUGS (21)
  1. LEVAQUIN [Suspect]
     Active Substance: LEVOFLOXACIN
     Indication: BREATH SOUNDS ABNORMAL
     Dosage: 1 PILL ONCE DAILY TAKEN BY MOUTH
     Route: 048
     Dates: start: 20150526, end: 20150607
  2. XANAX [Concomitant]
     Active Substance: ALPRAZOLAM
  3. BIPAP [Concomitant]
     Active Substance: DEVICE
  4. VITAMIN D [Concomitant]
     Active Substance: CHOLECALCIFEROL
  5. LEVAQUIN [Suspect]
     Active Substance: LEVOFLOXACIN
     Indication: BRONCHITIS
     Dosage: 1 PILL ONCE DAILY TAKEN BY MOUTH
     Route: 048
     Dates: start: 20150526, end: 20150607
  6. FOLIC ACID. [Concomitant]
     Active Substance: FOLIC ACID
  7. PROTONIX [Concomitant]
     Active Substance: PANTOPRAZOLE SODIUM
  8. MORPHINE [Concomitant]
     Active Substance: MORPHINE
  9. OXYGEN. [Concomitant]
     Active Substance: OXYGEN
  10. OXYCODONE [Concomitant]
     Active Substance: OXYCODONE
  11. PREDNISONE. [Concomitant]
     Active Substance: PREDNISONE
  12. ALBUTEROL. [Concomitant]
     Active Substance: ALBUTEROL
  13. TYLENOL [Concomitant]
     Active Substance: ACETAMINOPHEN
  14. MAGNESIUM [Concomitant]
     Active Substance: MAGNESIUM
  15. PROZAC [Concomitant]
     Active Substance: FLUOXETINE HYDROCHLORIDE
  16. MOTRIN [Concomitant]
     Active Substance: IBUPROFEN
  17. NEURONTIN [Concomitant]
     Active Substance: GABAPENTIN
  18. SOMA [Concomitant]
     Active Substance: CARISOPRODOL
  19. COLACE [Concomitant]
     Active Substance: DOCUSATE SODIUM
  20. ADVAIR DISKUS [Concomitant]
     Active Substance: FLUTICASONE PROPIONATE\SALMETEROL XINAFOATE
  21. VITAMIN B12 [Concomitant]
     Active Substance: CYANOCOBALAMIN

REACTIONS (8)
  - Paraesthesia [None]
  - Bedridden [None]
  - Feeling abnormal [None]
  - Myalgia [None]
  - Arthralgia [None]
  - Anxiety [None]
  - Feeling hot [None]
  - Muscle spasms [None]

NARRATIVE: CASE EVENT DATE: 20150604
